FAERS Safety Report 8500015 (Version 2)
Quarter: 2012Q4

REPORT INFORMATION
  Report Type: Report from Study
  Country: JP (occurrence: JP)
  Receive Date: 20120409
  Receipt Date: 20121228
  Transmission Date: 20130627
  Serious: Yes (Other)
  Sender: FDA-Public Use
  Company Number: JP-VERTEX PHARMACEUTICALS INC.-AE-2012-004625

PATIENT
  Age: 57 Year
  Sex: Male

DRUGS (13)
  1. VX-950 (TELAPREVIR) [Suspect]
     Indication: CHRONIC HEPATITIS C
     Dosage: 2250 mg, qd
     Route: 048
     Dates: start: 20120131, end: 20120210
  2. PEGINTRON                          /01543001/ [Suspect]
     Indication: CHRONIC HEPATITIS C
     Dosage: 1.5 ?g/kg, qw
     Route: 058
     Dates: start: 20120131, end: 20120206
  3. PEGINTRON                          /01543001/ [Suspect]
     Dosage: 1.2 ?g/kg, qw
     Route: 058
     Dates: start: 20120207, end: 20120220
  4. REBETOL [Suspect]
     Indication: CHRONIC HEPATITIS C
     Dosage: 800 mg, qd
     Route: 048
     Dates: start: 20120131, end: 20120207
  5. OLMETEC [Concomitant]
     Dosage: 20 mg, qd
     Route: 048
     Dates: end: 20120301
  6. EVAMYL [Concomitant]
     Dosage: 1 mg, qd
     Route: 048
  7. CONIEL [Concomitant]
     Dosage: 4 mg, qd
     Route: 048
     Dates: start: 20120131, end: 20120301
  8. MUCOSTA [Concomitant]
     Dosage: 100 mg/ day, prn
     Dates: start: 20120131
  9. LOXONIN [Concomitant]
     Dosage: 60 mg/ day, prn
     Dates: start: 20120131
  10. MENTAX [Concomitant]
     Dosage: UNK
     Route: 061
     Dates: start: 20120210
  11. MENTAX [Concomitant]
     Dosage: UNK
     Route: 051
     Dates: start: 20120210
  12. GLACTIV [Concomitant]
     Dosage: 50 mg, qd
     Route: 048
     Dates: start: 20120207, end: 20120301
  13. JANUVIA [Concomitant]
     Dosage: 50 mg, qd
     Route: 048
     Dates: end: 20120206

REACTIONS (2)
  - Blood creatinine increased [Recovered/Resolved]
  - Blood uric acid increased [Recovered/Resolved]
